FAERS Safety Report 6371288-5 (Version None)
Quarter: 2009Q3

REPORT INFORMATION
  Report Type: 
  Country: None (occurrence: None)
  Receive Date: 20090923
  Receipt Date: 20090914
  Transmission Date: 20100115
  Serious: Yes (Other)
  Sender: FDA-Public Use
  Company Number: DK-BRISTOL-MYERS SQUIBB COMPANY-14641344

PATIENT
  Age: 23 Year
  Sex: Female

DRUGS (5)
  1. ABATACEPT [Suspect]
     Indication: CROHN'S DISEASE
     Dates: start: 20070701, end: 20080401
  2. AZATHIOPRINE [Suspect]
     Dates: start: 20000919, end: 20080422
  3. INFLIXIMAB [Suspect]
  4. ADALIMUMAB [Suspect]
  5. PREDNISONE [Concomitant]
     Dates: start: 20080404

REACTIONS (1)
  - COLON CANCER METASTATIC [None]
